FAERS Safety Report 21232143 (Version 1)
Quarter: 2022Q3

REPORT INFORMATION
  Report Type: Spontaneous
  Country: RO (occurrence: None)
  Receive Date: 20220819
  Receipt Date: 20220819
  Transmission Date: 20221026
  Serious: Yes (Death, Hospitalization)
  Sender: FDA-Public Use
  Company Number: Unknown

PATIENT
  Age: 52 Year
  Sex: Female

DRUGS (2)
  1. CARBAMAZEPINE [Suspect]
     Active Substance: CARBAMAZEPINE
     Indication: Dementia
     Route: 065
  2. ACETIC ACID [Suspect]
     Active Substance: ACETIC ACID
     Indication: Accidental exposure to product
     Dosage: ABOUT A LITER
     Route: 048

REACTIONS (3)
  - Hepatotoxicity [Fatal]
  - Multiple organ dysfunction syndrome [Fatal]
  - Toxicity to various agents [Fatal]
